FAERS Safety Report 24716534 (Version 2)
Quarter: 2024Q4

REPORT INFORMATION
  Report Type: Spontaneous
  Country: IT (occurrence: IT)
  Receive Date: 20241210
  Receipt Date: 20241223
  Transmission Date: 20250115
  Serious: Yes (Hospitalization)
  Sender: ABBVIE
  Company Number: None

PATIENT
  Age: 55 Year
  Sex: Female

DRUGS (1)
  1. ADALIMUMAB [Suspect]
     Active Substance: ADALIMUMAB
     Indication: Colitis ulcerative
     Dosage: 1 VIAL SUBCUTANEOUSLY EVERY 7 DAYS (INCREASED DOSAGE COMPARED TO THE STANDARD MAINTENANCE OF 1 VI...
     Route: 058
     Dates: start: 20230315, end: 202407

REACTIONS (4)
  - Acute respiratory failure [Recovering/Resolving]
  - Pneumonia mycoplasmal [Recovering/Resolving]
  - Epstein-Barr virus infection reactivation [Recovering/Resolving]
  - Pneumonia [Recovering/Resolving]

NARRATIVE: CASE EVENT DATE: 20240728
